FAERS Safety Report 11682755 (Version 1)
Quarter: 2015Q4

REPORT INFORMATION
  Report Type: Spontaneous
  Country: US (occurrence: US)
  Receive Date: 20151029
  Receipt Date: 20151029
  Transmission Date: 20160304
  Serious: No
  Sender: FDA-Public Use
  Company Number: US-MYLANLABS-2014M1006718

PATIENT
  Sex: Male

DRUGS (1)
  1. ETOPOSIDE CAPSULES [Suspect]
     Active Substance: ETOPOSIDE
     Dosage: 50 MG, QD
     Route: 048
     Dates: start: 201408

REACTIONS (2)
  - No adverse event [Recovered/Resolved]
  - Wrong technique in product usage process [Recovered/Resolved]

NARRATIVE: CASE EVENT DATE: 201409
